FAERS Safety Report 10166845 (Version 1)
Quarter: 2014Q2

REPORT INFORMATION
  Report Type: Spontaneous
  Country: US (occurrence: US)
  Receive Date: 20140512
  Receipt Date: 20140512
  Transmission Date: 20141212
  Serious: No
  Sender: FDA-Public Use
  Company Number: US-UPSHER-SMITH LABORATORIES, INC.-13004184

PATIENT
  Age: 77 Year
  Sex: Female

DRUGS (5)
  1. SORINE [Suspect]
     Indication: ATRIAL FIBRILLATION
     Dosage: 60 MG, TID
     Route: 048
     Dates: start: 200912
  2. COUMADIN [Concomitant]
     Dosage: UNK
  3. DIGOXIN [Concomitant]
     Dosage: UNK
  4. LASIX [Concomitant]
     Dosage: UNK
  5. TYLENOL [Concomitant]
     Dosage: UNK, PRN

REACTIONS (7)
  - Muscular weakness [Recovered/Resolved]
  - Dyspnoea [Recovered/Resolved]
  - Hyperhidrosis [Recovered/Resolved]
  - Palpitations [Recovered/Resolved]
  - Gait disturbance [Recovered/Resolved]
  - Cardiac stress test abnormal [Recovered/Resolved]
  - Malaise [Recovered/Resolved]
